FAERS Safety Report 18729059 (Version 1)
Quarter: 2021Q1

REPORT INFORMATION
  Report Type: Spontaneous
  Country: DE (occurrence: DE)
  Receive Date: 20210112
  Receipt Date: 20210112
  Transmission Date: 20210419
  Serious: Yes (Death)
  Sender: FDA-Public Use
  Company Number: NVSC2021DE004705

PATIENT
  Sex: Female
  Weight: 67 kg

DRUGS (3)
  1. TECENTRIQ [Suspect]
     Active Substance: ATEZOLIZUMAB
     Indication: TRIPLE NEGATIVE BREAST CANCER
     Dosage: 1200 MG
     Route: 042
     Dates: start: 20200917, end: 20200917
  2. GEMCITABINE. [Concomitant]
     Active Substance: GEMCITABINE
     Indication: BREAST CANCER
     Dosage: 1740 MG, Q3W(1000 MG/M2)
     Route: 042
  3. CARBOPLATIN. [Suspect]
     Active Substance: CARBOPLATIN
     Indication: TRIPLE NEGATIVE BREAST CANCER
     Dosage: 680 MG, Q3W
     Route: 042
     Dates: start: 20200917

REACTIONS (7)
  - Product administration error [Unknown]
  - Intentional product use issue [Unknown]
  - Extra dose administered [Unknown]
  - Off label use [Unknown]
  - Overdose [Unknown]
  - Chest discomfort [Unknown]
  - Respiratory failure [Fatal]

NARRATIVE: CASE EVENT DATE: 20200917
